FAERS Safety Report 10171386 (Version 2)
Quarter: 2014Q2

REPORT INFORMATION
  Report Type: Report from Study
  Country: JP (occurrence: JP)
  Receive Date: 20140514
  Receipt Date: 20140627
  Transmission Date: 20141212
  Serious: Yes (Hospitalization)
  Sender: FDA-Public Use
  Company Number: JP-SA-2014SA060540

PATIENT
  Age: 34 Year
  Sex: Male
  Weight: 39.6 kg

DRUGS (6)
  1. THYMOGLOBULINE [Suspect]
     Indication: BONE MARROW CONDITIONING REGIMEN
     Route: 042
     Dates: start: 20130902, end: 20130903
  2. TACROLIMUS [Concomitant]
     Indication: MYELODYSPLASTIC SYNDROME
     Dates: start: 20130902, end: 20131230
  3. VENILON [Concomitant]
     Indication: MYELODYSPLASTIC SYNDROME
     Dates: start: 20130903, end: 20140104
  4. FINIBAX [Concomitant]
     Indication: INFECTION PROPHYLAXIS
     Dates: end: 20140104
  5. CANCIDAS [Concomitant]
     Indication: INFECTION PROPHYLAXIS
     Dates: start: 20130903, end: 20140104
  6. METHYLPREDNISOLONE [Concomitant]
     Indication: MYELODYSPLASTIC SYNDROME
     Dates: end: 20140103

REACTIONS (2)
  - Diarrhoea [Not Recovered/Not Resolved]
  - Graft versus host disease [Not Recovered/Not Resolved]
